FAERS Safety Report 23787265 (Version 1)
Quarter: 2024Q2

REPORT INFORMATION
  Report Type: Spontaneous
  Country: CA (occurrence: None)
  Receive Date: 20240426
  Receipt Date: 20240426
  Transmission Date: 20240716
  Serious: Yes (Other)
  Sender: FDA-Public Use
  Company Number: 2024A094987

PATIENT

DRUGS (2)
  1. DURVALUMAB [Suspect]
     Active Substance: DURVALUMAB
     Indication: Non-small cell lung cancer stage IIIB
     Route: 042
  2. CISPLATIN [Suspect]
     Active Substance: CISPLATIN

REACTIONS (6)
  - Radiation pneumonitis [Recovered/Resolved]
  - Immune-mediated lung disease [Not Recovered/Not Resolved]
  - Streptococcal infection [Not Recovered/Not Resolved]
  - Haemophilus infection [Not Recovered/Not Resolved]
  - Pulmonary embolism [Recovered/Resolved]
  - Pyrexia [Not Recovered/Not Resolved]
